FAERS Safety Report 17307350 (Version 1)
Quarter: 2020Q1

REPORT INFORMATION
  Report Type: Spontaneous
  Country: US (occurrence: US)
  Receive Date: 20200123
  Receipt Date: 20200123
  Transmission Date: 20200409
  Serious: No
  Sender: FDA-Public Use
  Company Number: US-ELI_LILLY_AND_COMPANY-US202001005180

PATIENT
  Age: 59 Year
  Sex: Female

DRUGS (2)
  1. SYNJARDY [Concomitant]
     Active Substance: EMPAGLIFLOZIN\METFORMIN HYDROCHLORIDE
     Indication: TYPE 2 DIABETES MELLITUS
     Dosage: UNK, UNKNOWN
     Route: 065
  2. TRULICITY [Suspect]
     Active Substance: DULAGLUTIDE
     Indication: TYPE 2 DIABETES MELLITUS
     Dosage: 1.5 MG, WEEKLY (1/W)
     Route: 058
     Dates: start: 201801

REACTIONS (5)
  - Product administered at inappropriate site [Unknown]
  - Injection site bruising [Recovering/Resolving]
  - Injection site induration [Unknown]
  - Muscle spasticity [Recovering/Resolving]
  - Musculoskeletal stiffness [Unknown]

NARRATIVE: CASE EVENT DATE: 20200112
